FAERS Safety Report 8505430-4 (Version None)
Quarter: 2012Q3

REPORT INFORMATION
  Report Type: 
  Country: None (occurrence: None)
  Receive Date: 20120712
  Receipt Date: 20120705
  Transmission Date: 20120928
  Serious: Yes (Hospitalization, Other)
  Sender: FDA-Public Use
  Company Number: CA-UCBSA-061170

PATIENT
  Age: 56 Year
  Sex: Female
  Weight: 54 kg

DRUGS (19)
  1. ATIVAN [Concomitant]
     Route: 060
  2. CALCIUM [Concomitant]
  3. CITALOPRAM HYDROBROMIDE [Concomitant]
  4. LANSOPRAZOLE [Concomitant]
     Dosage: DELAYED RELEASE
  5. CYCLOBENZAPRINE [Concomitant]
  6. ACETAMINOPHEN [Concomitant]
  7. PHENYTOIN SODIUM [Concomitant]
  8. KEPPRA [Suspect]
     Dosage: DOSING: 1000 MG
     Route: 048
  9. MULTIPLE VITAMINS [Concomitant]
  10. PERCOCET [Concomitant]
  11. KEPPRA [Suspect]
     Dosage: DOSING: 250 MG
     Route: 048
  12. MEPERIDINE HCL [Concomitant]
     Route: 030
  13. TYLENOL W/ CODEINE [Concomitant]
  14. KEPPRA [Suspect]
     Dosage: DOSING: 750 MG
     Route: 048
  15. ZOPICLONE [Concomitant]
  16. KEPPRA [Suspect]
     Dosage: DOSING: 500 MG
     Route: 048
  17. LEVOTHYROXINE SODIUM [Concomitant]
  18. LORAZEPAM [Concomitant]
  19. NICOTINE [Concomitant]

REACTIONS (1)
  - ANTICONVULSANT DRUG LEVEL INCREASED [None]
